FAERS Safety Report 12143343 (Version 1)
Quarter: 2016Q1

REPORT INFORMATION
  Report Type: Spontaneous
  Country: US (occurrence: US)
  Receive Date: 20160304
  Receipt Date: 20160304
  Transmission Date: 20160526
  Serious: Yes (Hospitalization, Other)
  Sender: FDA-Public Use
  Company Number: PHHY2013US172346

PATIENT
  Sex: Male

DRUGS (3)
  1. LOVAZA [Suspect]
     Active Substance: OMEGA-3-ACID ETHYL ESTERS
     Indication: NEOPLASM MALIGNANT
     Dosage: 1 G, OT
     Route: 065
     Dates: start: 20101118
  2. ZOFRAN [Suspect]
     Active Substance: ONDANSETRON HYDROCHLORIDE
     Indication: PRODUCT USED FOR UNKNOWN INDICATION
     Dosage: UNK, U
     Route: 065
  3. METFORMIN [Suspect]
     Active Substance: METFORMIN HYDROCHLORIDE
     Indication: PRODUCT USED FOR UNKNOWN INDICATION
     Dosage: OT
     Route: 065

REACTIONS (4)
  - Hospitalisation [Recovered/Resolved]
  - Abdominal pain [Unknown]
  - Nausea [Unknown]
  - Gastrointestinal disorder [Unknown]
